FAERS Safety Report 5633641-4 (Version None)
Quarter: 2008Q1

REPORT INFORMATION
  Report Type: 
  Country: None (occurrence: None)
  Receive Date: 20080221
  Receipt Date: 20080213
  Transmission Date: 20080703
  Serious: Yes (Other)
  Sender: FDA-Public Use
  Company Number: JP-PFIZER INC-2008014258

PATIENT
  Sex: Female

DRUGS (1)
  1. DETRUSITOL SR [Suspect]
     Indication: NOCTURIA
     Dosage: DAILY DOSE:4MG
     Route: 048

REACTIONS (1)
  - GLAUCOMA [None]
